FAERS Safety Report 25952207 (Version 1)
Quarter: 2025Q4

REPORT INFORMATION
  Report Type: Report from Study
  Country: US (occurrence: US)
  Receive Date: 20251023
  Receipt Date: 20251023
  Transmission Date: 20260118
  Serious: Yes (Other)
  Sender: NOVARTIS
  Company Number: US-002147023-NVSC2025US154078

PATIENT
  Age: 53 Year
  Sex: Female
  Weight: 74.84 kg

DRUGS (2)
  1. COSENTYX [Suspect]
     Active Substance: SECUKINUMAB
     Indication: Product used for unknown indication
     Dosage: 300 MG/KG, QMO
     Route: 058
     Dates: start: 20250116
  2. COSENTYX [Suspect]
     Active Substance: SECUKINUMAB
     Dosage: 300 MG, QMO (2 ML)
     Route: 058
     Dates: start: 20250801

REACTIONS (3)
  - COVID-19 [Not Recovered/Not Resolved]
  - Malaise [Not Recovered/Not Resolved]
  - Product prescribing error [Unknown]

NARRATIVE: CASE EVENT DATE: 20250930
